FAERS Safety Report 7023244-1 (Version None)
Quarter: 2010Q3

REPORT INFORMATION
  Report Type: 
  Country: None (occurrence: None)
  Receive Date: 20100930
  Receipt Date: 20100923
  Transmission Date: 20110219
  Serious: Yes (Death, Hospitalization)
  Sender: FDA-Public Use
  Company Number: US-GILEAD-2010-0031923

PATIENT
  Sex: Female
  Weight: 131.66 kg

DRUGS (18)
  1. LETAIRIS [Suspect]
     Indication: PULMONARY ARTERIAL HYPERTENSION
     Route: 048
     Dates: start: 20090218
  2. REVATIO [Concomitant]
  3. COUMADIN [Concomitant]
  4. ZAROXOLYN [Concomitant]
  5. OXYGEN [Concomitant]
  6. PLO GEL [Concomitant]
  7. CYMBALTA [Concomitant]
  8. BENADRYL [Concomitant]
  9. ATIVAN [Concomitant]
  10. LORTAB [Concomitant]
  11. SOMA [Concomitant]
  12. IMODIUM [Concomitant]
  13. NASACORT [Concomitant]
  14. FLOVENT [Concomitant]
  15. PROVENTIL [Concomitant]
  16. K-DUR [Concomitant]
  17. AMBIEN [Concomitant]
  18. ATARAX [Concomitant]

REACTIONS (2)
  - DEATH [None]
  - GASTROINTESTINAL DISORDER [None]
